FAERS Safety Report 11790010 (Version 2)
Quarter: 2015Q4

REPORT INFORMATION
  Report Type: Spontaneous
  Country: KR (occurrence: KR)
  Receive Date: 20151201
  Receipt Date: 20151218
  Transmission Date: 20160305
  Serious: Yes (Other)
  Sender: FDA-Public Use
  Company Number: KR-PFIZER INC-2015399232

PATIENT
  Age: 73 Year
  Sex: Female

DRUGS (4)
  1. TOVIAZ [Suspect]
     Active Substance: FESOTERODINE FUMARATE
     Indication: NOCTURIA
     Dosage: 4 MG, 1X/DAY
     Route: 048
     Dates: start: 20151112, end: 20151113
  2. HARNAL [Concomitant]
     Active Substance: TAMSULOSIN HYDROCHLORIDE
     Dosage: 0.2 MG, 1X/DAY (BEFORE GOING TO SLEEP)
     Route: 048
     Dates: start: 20151112
  3. HINECOL [Concomitant]
     Dosage: 1 DF, 3X/DAY
     Route: 048
     Dates: start: 20151112
  4. MESTINON [Concomitant]
     Active Substance: PYRIDOSTIGMINE BROMIDE
     Dosage: 1 DF, 3X/DAY
     Route: 048
     Dates: start: 20151112

REACTIONS (2)
  - Urinary retention [Recovering/Resolving]
  - Bladder discomfort [Recovering/Resolving]

NARRATIVE: CASE EVENT DATE: 20151114
